FAERS Safety Report 10071166 (Version 1)
Quarter: 2014Q2

REPORT INFORMATION
  Report Type: Spontaneous
  Country: BG (occurrence: BG)
  Receive Date: 20140410
  Receipt Date: 20140410
  Transmission Date: 20141212
  Serious: Yes (Other)
  Sender: FDA-Public Use
  Company Number: BG-ASTRAZENECA-2014SE23341

PATIENT
  Age: 874 Month
  Sex: Female

DRUGS (3)
  1. BRILIQUE [Suspect]
     Indication: ACUTE CORONARY SYNDROME
     Route: 048
     Dates: start: 20140305, end: 20140402
  2. RAMIPRIL [Concomitant]
     Indication: ACUTE CORONARY SYNDROME
  3. ASPIRIN [Concomitant]
     Indication: ACUTE CORONARY SYNDROME

REACTIONS (3)
  - Choking [Unknown]
  - Dyspnoea [Unknown]
  - Cough [Unknown]
